FAERS Safety Report 9452415 (Version 1)
Quarter: 2013Q3

REPORT INFORMATION
  Report Type: Spontaneous
  Country: US (occurrence: None)
  Receive Date: 20130808
  Receipt Date: 20130808
  Transmission Date: 20140515
  Serious: Yes (Life-Threatening, Hospitalization, Disabling)
  Sender: FDA-Public Use
  Company Number: None

PATIENT
  Age: 45 Year
  Sex: Female
  Weight: 110 kg

DRUGS (7)
  1. ZOLEDRONIC ACID [Suspect]
     Indication: BREAST CANCER STAGE IV
     Dosage: 1 DOSE
     Route: 042
  2. AMLODIPINE/HCTZ [Concomitant]
  3. ASA [Concomitant]
  4. EFFEXOR XR [Concomitant]
  5. IBUPROFEN [Concomitant]
  6. JANUVIA [Concomitant]
  7. PRAVASTATIN [Concomitant]

REACTIONS (2)
  - Blood creatinine increased [None]
  - Product substitution issue [None]
